FAERS Safety Report 13875083 (Version 1)
Quarter: 2017Q3

REPORT INFORMATION
  Report Type: Spontaneous
  Country: US (occurrence: US)
  Receive Date: 20170816
  Receipt Date: 20170816
  Transmission Date: 20171127
  Serious: No
  Sender: FDA-Public Use
  Company Number: US-ELI_LILLY_AND_COMPANY-US201708004395

PATIENT
  Sex: Male

DRUGS (1)
  1. TRULICITY [Suspect]
     Active Substance: DULAGLUTIDE
     Indication: DRUG DOSE OMISSION
     Dosage: UNK, UNKNOWN
     Route: 065

REACTIONS (3)
  - Allergic reaction to excipient [Unknown]
  - Nausea [Unknown]
  - Vomiting [Unknown]
